FAERS Safety Report 10052972 (Version 1)
Quarter: 2014Q1

REPORT INFORMATION
  Report Type: Spontaneous
  Country: TR (occurrence: None)
  Receive Date: 20140331
  Receipt Date: 20140331
  Transmission Date: 20141002
  Serious: Yes (Hospitalization)
  Sender: FDA-Public Use
  Company Number: PHEB20140006

PATIENT
  Age: 17 Month
  Sex: Male

DRUGS (2)
  1. PHENOBARBITAL [Suspect]
     Indication: EPILEPSY
     Route: 048
  2. VALPROIC ACID [Suspect]
     Indication: EPILEPSY
     Route: 048

REACTIONS (3)
  - Hyperammonaemia [None]
  - Confusional state [None]
  - Hyperglycaemia [None]
